FAERS Safety Report 11314300 (Version 3)
Quarter: 2015Q3

REPORT INFORMATION
  Report Type: Spontaneous
  Country: US (occurrence: US)
  Receive Date: 20150727
  Receipt Date: 20150826
  Transmission Date: 20151125
  Serious: Yes (Other)
  Sender: FDA-Public Use
  Company Number: US-GLAXOSMITHKLINE-US2015GSK106591

PATIENT
  Age: 71 Year
  Sex: Female

DRUGS (6)
  1. OSCAL [Concomitant]
     Active Substance: CALCIUM CARBONATE
  2. ADVAIR DISKUS [Suspect]
     Active Substance: FLUTICASONE PROPIONATE\SALMETEROL XINAFOATE
     Indication: ASTHMA
     Dosage: 1 PUFF(S), BID
     Route: 055
     Dates: start: 2014
  3. IBANDRONATE [Concomitant]
     Active Substance: IBANDRONATE SODIUM
  4. ATORVASTATIN [Concomitant]
     Active Substance: ATORVASTATIN
  5. SYNTHROID [Concomitant]
     Active Substance: LEVOTHYROXINE SODIUM
  6. BAYER LOW DOSE ASPIRIN [Concomitant]

REACTIONS (8)
  - Oesophagogastric fundoplasty [Unknown]
  - Product quality issue [Unknown]
  - Incorrect dose administered by device [Unknown]
  - Hernia hiatus repair [Unknown]
  - Heart rate increased [Recovered/Resolved]
  - Gastrooesophageal reflux disease [Unknown]
  - Palpitations [Recovered/Resolved]
  - Hiatus hernia [Unknown]

NARRATIVE: CASE EVENT DATE: 20150527
